FAERS Safety Report 24346333 (Version 1)
Quarter: 2024Q3

REPORT INFORMATION
  Report Type: Spontaneous
  Country: CA (occurrence: CA)
  Receive Date: 20240921
  Receipt Date: 20240921
  Transmission Date: 20241016
  Serious: Yes (Other)
  Sender: TEVA
  Company Number: CA-TEVA-VS-3244104

PATIENT
  Age: 64 Year
  Sex: Female

DRUGS (3)
  1. PREDNISONE [Suspect]
     Active Substance: PREDNISONE
     Indication: Warm autoimmune haemolytic anaemia
     Route: 065
     Dates: start: 202305, end: 202306
  2. PREDNISONE [Suspect]
     Active Substance: PREDNISONE
     Indication: Warm autoimmune haemolytic anaemia
     Route: 065
     Dates: start: 202311
  3. PREDNISONE [Suspect]
     Active Substance: PREDNISONE
     Indication: Warm autoimmune haemolytic anaemia
     Route: 048
     Dates: start: 202403

REACTIONS (5)
  - Cataract [Unknown]
  - Fatigue [Unknown]
  - Drug dependence [Unknown]
  - Haemoglobin abnormal [Unknown]
  - Haemolysis [Unknown]

NARRATIVE: CASE EVENT DATE: 20230101
